FAERS Safety Report 5804682-9 (Version None)
Quarter: 2008Q3

REPORT INFORMATION
  Report Type: 
  Country: None (occurrence: None)
  Receive Date: 20080709
  Receipt Date: 20080703
  Transmission Date: 20090109
  Serious: Yes (Hospitalization)
  Sender: FDA-Public Use
  Company Number: CA-AMGEN-US291383

PATIENT
  Sex: Female

DRUGS (8)
  1. PANITUMUMAB [Suspect]
     Indication: SQUAMOUS CELL CARCINOMA
     Route: 042
     Dates: start: 20080417, end: 20080529
  2. RADIATION THERAPY [Suspect]
     Dates: start: 20080529, end: 20080609
  3. CIPROFLOXACIN [Concomitant]
     Route: 048
     Dates: start: 20080617
  4. MORPHINE [Concomitant]
     Route: 048
  5. NYSTATIN [Concomitant]
     Route: 048
  6. GLAXAL BASE CREAM [Concomitant]
     Route: 061
  7. ACETAMINOPHEN [Concomitant]
     Route: 048
  8. CISPLATIN [Concomitant]
     Route: 042
     Dates: start: 20080529, end: 20080609

REACTIONS (1)
  - INFECTION [None]
